FAERS Safety Report 8763228 (Version 1)
Quarter: 2012Q4

REPORT INFORMATION
  Report Type: 
  Country: US (occurrence: US)
  Receive Date: 20120831
  Receipt Date: 20120831
  Transmission Date: 20130627
  Serious: No
  Sender: FDA-Public Use
  Company Number: US-MYLANLABS-2012S1013876

PATIENT
  Age: 28 Year
  Sex: Male
  Weight: 90.72 kg

DRUGS (1)
  1. CLINDAMYCIN/BENZOYL PEROXIDE GEL [Suspect]
     Indication: ACNE
     Route: 061
     Dates: start: 2010

REACTIONS (2)
  - Drug effect decreased [Not Recovered/Not Resolved]
  - Acne [Not Recovered/Not Resolved]
